FAERS Safety Report 5383023-8 (Version None)
Quarter: 2007Q3

REPORT INFORMATION
  Report Type: 
  Country: None (occurrence: None)
  Receive Date: 20070710
  Receipt Date: 20070702
  Transmission Date: 20080115
  Serious: Yes (Hospitalization)
  Sender: FDA-Public Use
  Company Number: FR-ROCHE-505252

PATIENT
  Age: 54 Year
  Sex: Male
  Weight: 87 kg

DRUGS (10)
  1. MYCOPHENOLATE MOFETIL [Suspect]
     Route: 048
     Dates: start: 20070604, end: 20070618
  2. MYCOPHENOLATE MOFETIL [Suspect]
     Route: 048
     Dates: start: 20070627
  3. ROVALCYTE [Suspect]
     Indication: DRUG USE FOR UNKNOWN INDICATION
     Route: 065
     Dates: start: 20070327
  4. SOTALOL HCL [Concomitant]
     Dates: start: 20070101
  5. EUPRESSYL [Concomitant]
     Dates: start: 20070101
  6. HYPERIUM [Concomitant]
     Dates: start: 20070310
  7. LASIX [Concomitant]
     Dates: start: 20070320, end: 20070617
  8. NEORAL [Concomitant]
     Dates: start: 20070126
  9. PREVISCAN [Concomitant]
     Dates: start: 20070315
  10. AMLODIPINE [Concomitant]
     Dates: start: 20070101

REACTIONS (1)
  - AGRANULOCYTOSIS [None]
